FAERS Safety Report 7482938-4 (Version None)
Quarter: 2011Q2

REPORT INFORMATION
  Report Type: 
  Country: None (occurrence: None)
  Receive Date: 20110516
  Receipt Date: 20110509
  Transmission Date: 20111010
  Serious: Yes (Hospitalization)
  Sender: FDA-Public Use
  Company Number: US-GILEAD-2011-0036243

PATIENT
  Sex: Female

DRUGS (2)
  1. LETAIRIS [Suspect]
     Indication: PULMONARY HYPERTENSION
     Route: 048
     Dates: start: 20100925
  2. ADCIRCA [Concomitant]

REACTIONS (4)
  - HAEMATOCRIT DECREASED [None]
  - SYNCOPE [None]
  - HAEMORRHAGE [None]
  - HAEMOGLOBIN DECREASED [None]
